FAERS Safety Report 21116427 (Version 3)
Quarter: 2022Q3

REPORT INFORMATION
  Report Type: Other
  Country: CA (occurrence: None)
  Receive Date: 20220722
  Receipt Date: 20220830
  Transmission Date: 20221027
  Serious: No
  Sender: FDA-Public Use
  Company Number: CA-ROCHE-3143829

PATIENT
  Age: 59 Year
  Sex: Female

DRUGS (3)
  1. OCREVUS [Suspect]
     Active Substance: OCRELIZUMAB
     Indication: Relapsing-remitting multiple sclerosis
     Dosage: 300 MG AT DAY 0 AND 14, THEN 600 MG EVERY 6 MONTH. CONCENTRATE FOR INTRAVENOUS INFUSION.
     Route: 042
     Dates: start: 20180717
  2. PAXLOVID [Concomitant]
     Active Substance: NIRMATRELVIR\RITONAVIR
  3. REMDESIVIR [Concomitant]
     Active Substance: REMDESIVIR

REACTIONS (3)
  - SARS-CoV-2 test positive [Unknown]
  - Secretion discharge [Unknown]
  - Breath sounds abnormal [Unknown]

NARRATIVE: CASE EVENT DATE: 20220718
